FAERS Safety Report 11310632 (Version 1)
Quarter: 2015Q3

REPORT INFORMATION
  Report Type: Spontaneous
  Country: None (occurrence: DE)
  Receive Date: 20150725
  Receipt Date: 20150725
  Transmission Date: 20151125
  Serious: Yes (Life-Threatening, Hospitalization)
  Sender: FDA-Public Use
  Company Number: DE-MEDAC PHARMA, INC.-1040760

PATIENT
  Age: 75 Year
  Sex: Male

DRUGS (14)
  1. METEX [Suspect]
     Active Substance: METFORMIN HYDROCHLORIDE
     Indication: RHEUMATOID ARTHRITIS
     Route: 058
     Dates: start: 201409, end: 20150630
  2. FALITHROM [Concomitant]
     Active Substance: PHENPROCOUMON
  3. OMEPRAZOLE. [Concomitant]
     Active Substance: OMEPRAZOLE
  4. NOVAMINSULFON [Concomitant]
     Active Substance: METAMIZOLE
  5. DEKRISTOL 20000 I.E. [Concomitant]
  6. QUENSYL [Suspect]
     Active Substance: HYDROXYCHLOROQUINE
     Route: 048
     Dates: start: 201409, end: 20150630
  7. ALLOPURINOL. [Suspect]
     Active Substance: ALLOPURINOL
     Route: 048
     Dates: start: 201405, end: 20150630
  8. RAMIPLUS AL 5 MG/25 MG [Concomitant]
  9. TORASEMIDE [Concomitant]
     Active Substance: TORSEMIDE
  10. TILIDINE 100/8 RETARD [Concomitant]
  11. SPIROGAMMA 100 [Concomitant]
     Dates: start: 20150625
  12. RAMIPRIL. [Concomitant]
     Active Substance: RAMIPRIL
  13. FOLIC ACID. [Concomitant]
     Active Substance: FOLIC ACID
  14. SIMVASTATIN. [Concomitant]
     Active Substance: SIMVASTATIN

REACTIONS (1)
  - Myelodysplastic syndrome [Not Recovered/Not Resolved]

NARRATIVE: CASE EVENT DATE: 20150630
